FAERS Safety Report 12161502 (Version 31)
Quarter: 2020Q3

REPORT INFORMATION
  Report Type: Other
  Country: CA (occurrence: CA)
  Receive Date: 20160309
  Receipt Date: 20200911
  Transmission Date: 20201102
  Serious: Yes (Hospitalization, Other)
  Sender: FDA-Public Use
  Company Number: CA-ROCHE-1498769

PATIENT
  Age: 68 Year
  Sex: Female
  Weight: 79 kg

DRUGS (17)
  1. AZATHIOPRINE. [Concomitant]
     Active Substance: AZATHIOPRINE
  2. PREDNISONE. [Concomitant]
     Active Substance: PREDNISONE
  3. ACTEMRA [Suspect]
     Active Substance: TOCILIZUMAB
     Route: 042
     Dates: start: 20160830
  4. CALCIUM [Concomitant]
     Active Substance: CALCIUM
  5. FOSAMAX [Concomitant]
     Active Substance: ALENDRONATE SODIUM
  6. ACETYLSALICYLIC ACID [Concomitant]
     Active Substance: ASPIRIN
  7. ACTEMRA [Suspect]
     Active Substance: TOCILIZUMAB
     Route: 042
     Dates: start: 20180827, end: 20180827
  8. ACTEMRA [Suspect]
     Active Substance: TOCILIZUMAB
     Dosage: ONGOING
     Route: 042
     Dates: start: 20181106, end: 20200421
  9. ACTEMRA [Suspect]
     Active Substance: TOCILIZUMAB
     Dosage: ONGOING
     Route: 042
     Dates: start: 20200519
  10. ZITHROMAX [Concomitant]
     Active Substance: AZITHROMYCIN DIHYDRATE
     Indication: PROPHYLAXIS
     Dosage: PORPHYLAXIS FOR LUNG INFECTION
  11. FOLIC ACID. [Concomitant]
     Active Substance: FOLIC ACID
  12. PRAVASTATIN. [Concomitant]
     Active Substance: PRAVASTATIN
  13. ACTEMRA [Suspect]
     Active Substance: TOCILIZUMAB
     Indication: POLYCHONDRITIS
     Route: 042
     Dates: start: 20140903, end: 20160802
  14. VOLTAREN [Concomitant]
     Active Substance: DICLOFENAC SODIUM
  15. ACTEMRA [Suspect]
     Active Substance: TOCILIZUMAB
     Route: 042
     Dates: start: 20181009, end: 20181009
  16. SYNTHROID [Concomitant]
     Active Substance: LEVOTHYROXINE SODIUM
  17. PULMICORT TURBUHALER [Concomitant]
     Active Substance: BUDESONIDE

REACTIONS (32)
  - Dyspnoea [Not Recovered/Not Resolved]
  - Candida infection [Recovered/Resolved]
  - Weight decreased [Recovered/Resolved]
  - Nasopharyngitis [Not Recovered/Not Resolved]
  - Ear infection [Unknown]
  - Product use issue [Unknown]
  - Genital neoplasm malignant female [Unknown]
  - Bursitis [Not Recovered/Not Resolved]
  - Confusional state [Unknown]
  - Rash papular [Unknown]
  - Arthralgia [Not Recovered/Not Resolved]
  - Fatigue [Not Recovered/Not Resolved]
  - Herpes zoster [Not Recovered/Not Resolved]
  - Gallbladder disorder [Unknown]
  - Rash [Not Recovered/Not Resolved]
  - Vomiting [Unknown]
  - Chondropathy [Unknown]
  - Urinary tract infection [Unknown]
  - Paraesthesia [Not Recovered/Not Resolved]
  - Vaginal haemorrhage [Not Recovered/Not Resolved]
  - Ear infection [Recovered/Resolved]
  - Chest pain [Unknown]
  - Amnesia [Unknown]
  - Pharyngitis [Recovered/Resolved]
  - Off label use [Unknown]
  - Nerve compression [Unknown]
  - Cellulitis [Not Recovered/Not Resolved]
  - Paraesthesia [Recovered/Resolved]
  - Cervical cord compression [Not Recovered/Not Resolved]
  - Deafness [Recovering/Resolving]
  - Pancreatic cyst [Unknown]
  - Pain in extremity [Not Recovered/Not Resolved]

NARRATIVE: CASE EVENT DATE: 201411
